FAERS Safety Report 6406302-1 (Version None)
Quarter: 2009Q4

REPORT INFORMATION
  Report Type: 
  Country: None (occurrence: None)
  Receive Date: 20091019
  Receipt Date: 20091013
  Transmission Date: 20100525
  Serious: Yes (Life-Threatening, Other)
  Sender: FDA-Public Use
  Company Number: PHBS2005BR13727

PATIENT
  Age: 46 Year
  Sex: Male
  Weight: 71 kg

DRUGS (4)
  1. LEPONEX [Suspect]
     Indication: SCHIZOPHRENIA
     Dosage: 200 MG/DAY
     Route: 048
     Dates: start: 20021121
  2. LEPONEX [Suspect]
     Dosage: 100 MG, QD
     Route: 048
  3. LEPONEX [Suspect]
     Dosage: 150 MG, QHS
     Route: 048
  4. LEGALON [Concomitant]
     Dosage: 70 MG, QD
     Route: 048

REACTIONS (10)
  - BLOOD PRESSURE INCREASED [None]
  - CARDIAC VENTRICULAR DISORDER [None]
  - DRUG HYPERSENSITIVITY [None]
  - HEPATIC CIRRHOSIS [None]
  - HEPATIC STEATOSIS [None]
  - HEPATIC VEIN OCCLUSION [None]
  - LIVER DISORDER [None]
  - LYMPHOCYTOSIS [None]
  - NASAL CONGESTION [None]
  - NEUTROPHIL COUNT DECREASED [None]
